FAERS Safety Report 15648081 (Version 1)
Quarter: 2018Q4

REPORT INFORMATION
  Report Type: Spontaneous
  Country: US (occurrence: US)
  Receive Date: 20181122
  Receipt Date: 20181122
  Transmission Date: 20190205
  Serious: No
  Sender: FDA-Public Use
  Company Number: US-PFIZER INC-2018477013

PATIENT
  Age: 45 Year
  Sex: Female
  Weight: 156.46 kg

DRUGS (7)
  1. DOCETAXEL. [Suspect]
     Active Substance: DOCETAXEL
     Indication: BREAST CANCER FEMALE
     Dosage: 75 MG/M2, EVERY 3 WEEKS FOR 4 CYCLES
     Dates: start: 20130531, end: 20130802
  2. PARAPLATIN [Concomitant]
     Active Substance: CARBOPLATIN
  3. COMPAZINE [PROCHLORPERAZINE EDISYLATE] [Concomitant]
  4. DEXAMETHASONE. [Concomitant]
     Active Substance: DEXAMETHASONE
  5. HYDROCODONE [Concomitant]
     Active Substance: HYDROCODONE
  6. ADRIAMYCIN [Concomitant]
     Active Substance: DOXORUBICIN HYDROCHLORIDE
  7. DOXIL [DICLOXACILLIN SODIUM MONOHYDRATE] [Concomitant]

REACTIONS (4)
  - Depression [Not Recovered/Not Resolved]
  - Hair colour changes [Not Recovered/Not Resolved]
  - Alopecia [Not Recovered/Not Resolved]
  - Hair texture abnormal [Not Recovered/Not Resolved]

NARRATIVE: CASE EVENT DATE: 2013
